FAERS Safety Report 5975628-8 (Version None)
Quarter: 2008Q4

REPORT INFORMATION
  Report Type: 
  Country: None (occurrence: None)
  Receive Date: 20081202
  Receipt Date: 20081120
  Transmission Date: 20090506
  Serious: Yes (Other)
  Sender: FDA-Public Use
  Company Number: PHHY2008CA29303

PATIENT
  Sex: Female

DRUGS (2)
  1. DIOVAN HCT [Suspect]
     Dosage: 160/12.5 MG TABLET/DAY
     Route: 048
     Dates: end: 20070101
  2. DIOVAN HCT [Suspect]
     Dosage: 80/12.5 MG
     Route: 048

REACTIONS (5)
  - AORTIC ANEURYSM [None]
  - AORTIC ANEURYSM REPAIR [None]
  - GAIT DISTURBANCE [None]
  - MYALGIA [None]
  - PAIN [None]
